FAERS Safety Report 12590584 (Version 7)
Quarter: 2018Q3

REPORT INFORMATION
  Report Type: Report from Study
  Country: US (occurrence: US)
  Receive Date: 20160725
  Receipt Date: 20180907
  Transmission Date: 20181010
  Serious: Yes (Other)
  Sender: FDA-Public Use
  Company Number: PHEH2016US018311

PATIENT
  Age: 34 Year
  Sex: Female

DRUGS (2)
  1. COSENTYX [Suspect]
     Active Substance: SECUKINUMAB
     Indication: ANKYLOSING SPONDYLITIS
     Dosage: 300 MG, QMO
     Route: 058
     Dates: start: 20160301
  2. PREDNISONE. [Suspect]
     Active Substance: PREDNISONE
     Indication: PRODUCT USED FOR UNKNOWN INDICATION
     Route: 065

REACTIONS (20)
  - Insomnia [Unknown]
  - Normal newborn [Unknown]
  - Dysuria [Unknown]
  - Inappropriate schedule of drug administration [Unknown]
  - Gait disturbance [Unknown]
  - Dry throat [Unknown]
  - Anxiety [Unknown]
  - Fatigue [Unknown]
  - Hot flush [Unknown]
  - Pain [Unknown]
  - Ankylosing spondylitis [Recovered/Resolved]
  - Cough [Unknown]
  - Ankylosing spondylitis [Recovering/Resolving]
  - Weight increased [Unknown]
  - Back pain [Recovering/Resolving]
  - Maternal exposure during pregnancy [Unknown]
  - Weight decreased [Unknown]
  - Road traffic accident [Unknown]
  - Epistaxis [Unknown]
  - Suppressed lactation [Unknown]

NARRATIVE: CASE EVENT DATE: 20161107
